FAERS Safety Report 25014281 (Version 1)
Quarter: 2025Q1

REPORT INFORMATION
  Report Type: Report from Study
  Country: US (occurrence: US)
  Receive Date: 20250226
  Receipt Date: 20250226
  Transmission Date: 20250409
  Serious: Yes (Other)
  Sender: TAKEDA
  Company Number: US-TAKEDA-2024TUS026090

PATIENT
  Age: 68 Year
  Sex: Female
  Weight: 78.367 kg

DRUGS (2)
  1. FRUQUINTINIB [Suspect]
     Active Substance: FRUQUINTINIB
     Indication: Colon cancer
  2. FRUQUINTINIB [Suspect]
     Active Substance: FRUQUINTINIB

REACTIONS (7)
  - Colon cancer [Unknown]
  - Dizziness [Recovering/Resolving]
  - Thirst [Unknown]
  - Erythema [Unknown]
  - Appetite disorder [Unknown]
  - Vomiting [Unknown]
  - Fatigue [Recovering/Resolving]

NARRATIVE: CASE EVENT DATE: 20240301
